FAERS Safety Report 5444084-0 (Version None)
Quarter: 2007Q3

REPORT INFORMATION
  Report Type: 
  Country: None (occurrence: None)
  Receive Date: 20070831
  Receipt Date: 20070816
  Transmission Date: 20080115
  Serious: Yes (Hospitalization)
  Sender: FDA-Public Use
  Company Number: VER_00066-2007

PATIENT
  Sex: Female
  Weight: 62.5964 kg

DRUGS (1)
  1. EPINEPHRINE [Suspect]
     Indication: HYPERSENSITIVITY
     Dosage: SUBCUTANEOUS
     Route: 058
     Dates: start: 20070621, end: 20070702

REACTIONS (4)
  - ANAPHYLACTIC REACTION [None]
  - DEVICE MALFUNCTION [None]
  - DRUG INEFFECTIVE [None]
  - PHARMACEUTICAL PRODUCT COMPLAINT [None]
